FAERS Safety Report 8289176-6 (Version None)
Quarter: 2012Q2

REPORT INFORMATION
  Report Type: 
  Country: None (occurrence: None)
  Receive Date: 20120417
  Receipt Date: 20120403
  Transmission Date: 20120825
  Serious: Yes (Hospitalization)
  Sender: FDA-Public Use
  Company Number: PHHO2008IT12945

PATIENT
  Sex: Male
  Weight: 74 kg

DRUGS (13)
  1. TACROLIMUS [Suspect]
     Dosage: 0.5 MG, BID
     Dates: start: 20081214
  2. RAD 666 / RAD 001A [Suspect]
     Indication: LIVER TRANSPLANT
     Dosage: 6 MG, BID
     Route: 048
     Dates: start: 20080812, end: 20081027
  3. RAD 666 / RAD 001A [Suspect]
     Dosage: NO TREATEMENT
     Dates: start: 20081028, end: 20081106
  4. TACROLIMUS [Suspect]
     Dosage: NO TREATMENT
     Dates: start: 20081105, end: 20081106
  5. TACROLIMUS [Suspect]
     Dosage: UNK
     Route: 048
     Dates: start: 20081107, end: 20081112
  6. TACROLIMUS [Suspect]
     Indication: LIVER TRANSPLANT
     Dosage: 0.5
     Route: 048
     Dates: start: 20080713, end: 20081027
  7. TACROLIMUS [Suspect]
     Dosage: NO TREATEMENT
     Dates: start: 20081028, end: 20081029
  8. TACROLIMUS [Suspect]
     Dosage: NO TREATMENT
     Dates: start: 20081101, end: 20081103
  9. TACROLIMUS [Suspect]
     Dosage: UNK
     Route: 048
     Dates: start: 20081104, end: 20081104
  10. TACROLIMUS [Suspect]
     Dosage: 0.5 MG, UNK
     Dates: start: 20081213, end: 20081213
  11. PREDNISONE TAB [Concomitant]
     Indication: LIVER TRANSPLANT
     Dosage: 15 MG, QD
     Route: 048
     Dates: start: 20080826
  12. RAD 666 / RAD 001A [Suspect]
     Dosage: 0.5 MG, UNK
     Route: 048
     Dates: start: 20081107, end: 20081107
  13. TACROLIMUS [Suspect]
     Dosage: UNK
     Route: 048
     Dates: start: 20081030, end: 20081031

REACTIONS (9)
  - PYREXIA [None]
  - PSYCHOTIC DISORDER [None]
  - PSEUDOMONAS INFECTION [None]
  - EPILEPSY [None]
  - NERVOUS SYSTEM DISORDER [None]
  - DRUG LEVEL INCREASED [None]
  - INFECTIOUS PERITONITIS [None]
  - HALLUCINATION [None]
  - BILOMA [None]
